FAERS Safety Report 6934218-0 (Version None)
Quarter: 2010Q3

REPORT INFORMATION
  Report Type: 
  Country: None (occurrence: None)
  Receive Date: 20100820
  Receipt Date: 20100809
  Transmission Date: 20110219
  Serious: Yes (Hospitalization)
  Sender: FDA-Public Use
  Company Number: FR-ELI_LILLY_AND_COMPANY-FR201008002212

PATIENT
  Sex: Male

DRUGS (12)
  1. GEMZAR [Suspect]
     Indication: LUNG NEOPLASM MALIGNANT
     Dosage: 2400 MG, UNKNOWN
     Route: 042
     Dates: start: 20100420, end: 20100427
  2. CISPLATIN [Concomitant]
     Indication: LUNG NEOPLASM MALIGNANT
     Dosage: 180 MG, UNKNOWN
     Route: 042
     Dates: start: 20100420
  3. METFORMIN HCL [Concomitant]
     Dosage: 850 MG, DAILY (1/D)
     Route: 065
  4. JANUVIA [Concomitant]
     Dosage: 100 MG, DAILY (1/D)
     Route: 065
  5. RAMIPRIL [Concomitant]
     Dosage: 2.5 MG, DAILY (1/D)
     Route: 065
  6. CRESTOR [Concomitant]
     Dosage: 5 MG, DAILY (1/D)
     Route: 065
  7. OMEPRAZOLE [Concomitant]
     Dosage: 20 MG, DAILY (1/D)
     Route: 065
  8. ASPEGIC 1000 [Concomitant]
     Dosage: 100 MG, DAILY (1/D)
     Route: 065
  9. STILNOX [Concomitant]
     Dosage: UNK D/F, DAILY (1/D)
     Route: 065
  10. SKENAN [Concomitant]
     Dosage: 10 MG, DAILY (1/D)
     Route: 065
  11. MORPHINE [Concomitant]
     Dosage: 5 MG, DAILY (1/D)
     Route: 065
  12. FORLAX [Concomitant]
     Dosage: UNK, AS NEEDED
     Route: 065

REACTIONS (1)
  - THROMBOTIC MICROANGIOPATHY [None]
